FAERS Safety Report 21724530 (Version 2)
Quarter: 2022Q4

REPORT INFORMATION
  Report Type: Spontaneous
  Country: US (occurrence: US)
  Receive Date: 20221213
  Receipt Date: 20221213
  Transmission Date: 20230112
  Serious: No
  Sender: FDA-Public Use
  Company Number: US-Dermavant-000193

PATIENT
  Age: 40 Year
  Sex: Male

DRUGS (3)
  1. TAPINAROF [Suspect]
     Active Substance: TAPINAROF
     Indication: Psoriasis
     Dosage: ONCE DAILY
     Route: 061
     Dates: start: 20210817, end: 20220918
  2. HUMIRA [Concomitant]
     Active Substance: ADALIMUMAB
     Indication: Psoriasis
  3. DESONIDE [Concomitant]
     Active Substance: DESONIDE

REACTIONS (3)
  - Milia [Not Recovered/Not Resolved]
  - Folliculitis [Not Recovered/Not Resolved]
  - Skin mass [Not Recovered/Not Resolved]
